FAERS Safety Report 10678551 (Version 1)
Quarter: 2014Q4

REPORT INFORMATION
  Report Type: Spontaneous
  Country: FR (occurrence: FR)
  Receive Date: 20141229
  Receipt Date: 20141229
  Transmission Date: 20150529
  Serious: Yes (Hospitalization)
  Sender: FDA-Public Use
  Company Number: FR-PFIZER INC-2014353518

PATIENT
  Age: 22 Year
  Sex: Male

DRUGS (4)
  1. LYRICA [Suspect]
     Active Substance: PREGABALIN
     Dosage: 1050 MG (21 TABLETS OF 50 MG), SINGLE
     Route: 048
     Dates: start: 20130630, end: 20130630
  2. CYMBALTA [Suspect]
     Active Substance: DULOXETINE HYDROCHLORIDE
     Dosage: 1680 MG, (28 TABLETS OF 60MG) SINGLE
     Route: 048
     Dates: start: 20130630, end: 20130630
  3. TERCIAN [Suspect]
     Active Substance: CYAMEMAZINE
     Dosage: 550 MG (22 TABLETS), SINGLE
     Route: 048
     Dates: start: 20130630, end: 20130630
  4. CANNABIS [Suspect]
     Active Substance: CANNABIS SATIVA SUBSP. INDICA TOP
     Dosage: UNK, SINGLE
     Dates: start: 20130630, end: 20130630

REACTIONS (4)
  - Tachycardia [Recovered/Resolved]
  - Depressed level of consciousness [Recovered/Resolved]
  - Hypotension [Recovered/Resolved]
  - Overdose [Unknown]

NARRATIVE: CASE EVENT DATE: 20130630
